FAERS Safety Report 5498916-0 (Version None)
Quarter: 2007Q4

REPORT INFORMATION
  Report Type: 
  Country: None (occurrence: None)
  Receive Date: 20071026
  Receipt Date: 20071017
  Transmission Date: 20080405
  Serious: Yes (Hospitalization)
  Sender: FDA-Public Use
  Company Number: BE-JNJFOC-20071004762

PATIENT
  Age: 51 Year
  Sex: Female

DRUGS (2)
  1. REMICADE [Suspect]
     Indication: RHEUMATOID ARTHRITIS
     Dosage: 70 MONTHS
     Route: 042
  2. LEDERTREXATE [Suspect]
     Indication: DRUG USE FOR UNKNOWN INDICATION

REACTIONS (5)
  - INTERSTITIAL LUNG DISEASE [None]
  - NERVOUS SYSTEM DISORDER [None]
  - PARALYSIS [None]
  - POLYNEUROPATHY [None]
  - PULMONARY FIBROSIS [None]
